FAERS Safety Report 21312043 (Version 1)
Quarter: 2022Q3

REPORT INFORMATION
  Report Type: Spontaneous
  Country: US (occurrence: None)
  Receive Date: 20220909
  Receipt Date: 20220909
  Transmission Date: 20221027
  Serious: No
  Sender: FDA-Public Use
  Company Number: US-ARIS GLOBAL-202203-0573

PATIENT
  Age: 70 Year
  Sex: Female

DRUGS (17)
  1. OXERVATE [Suspect]
     Active Substance: CENEGERMIN-BKBJ
     Indication: Neurotrophic keratopathy
     Route: 047
     Dates: start: 20220322
  2. FLUTICASONE PROPIONATE [Concomitant]
     Active Substance: FLUTICASONE PROPIONATE
  3. MUCINEX DM [Concomitant]
     Active Substance: DEXTROMETHORPHAN HYDROBROMIDE\GUAIFENESIN
     Dosage: 1200-60 MG SUSTAINED RELEASE 12 HOURS
  4. DOXYCYCLINE HYCLATE [Concomitant]
     Active Substance: DOXYCYCLINE HYCLATE
  5. CALCIUM\CHOLECALCIFEROL [Concomitant]
     Active Substance: CALCIUM\CHOLECALCIFEROL
     Dosage: 600 MG-12.5 EXTENDED RELEASE
  6. FLAREX [Concomitant]
     Active Substance: FLUOROMETHOLONE ACETATE
  7. TOBRAMYCIN [Concomitant]
     Active Substance: TOBRAMYCIN
  8. PSYLLIUM SEED [Concomitant]
     Dosage: 2.6 G/4.1 G
  9. METOPROLOL-HYDROCHLOROTHIAZIDE [Concomitant]
  10. HYDROCHLOROTHIAZIDE\LOSARTAN [Concomitant]
     Active Substance: HYDROCHLOROTHIAZIDE\LOSARTAN
  11. ATIVAN [Concomitant]
     Active Substance: LORAZEPAM
  12. LAMICTAL XR [Concomitant]
     Active Substance: LAMOTRIGINE
     Dosage: EXTENDED RELEASE 24 HOURS
  13. CYMBALTA [Concomitant]
     Active Substance: DULOXETINE HYDROCHLORIDE
     Dosage: DELAYED RELEASE
  14. BENTYL [Concomitant]
     Active Substance: DICYCLOMINE HYDROCHLORIDE
     Dosage: 10 MG/ML AMPUL
  15. IRON\VITAMINS [Concomitant]
     Active Substance: IRON\VITAMINS
  16. LIPITOR [Concomitant]
     Active Substance: ATORVASTATIN CALCIUM
  17. ABILIFY [Concomitant]
     Active Substance: ARIPIPRAZOLE

REACTIONS (5)
  - Sinusitis [Unknown]
  - Photophobia [Unknown]
  - Eye irritation [Unknown]
  - Eye pain [Unknown]
  - Ocular hyperaemia [Unknown]

NARRATIVE: CASE EVENT DATE: 20220411
